FAERS Safety Report 4434089-0 (Version None)
Quarter: 2004Q3

REPORT INFORMATION
  Report Type: 
  Country: None (occurrence: None)
  Receive Date: 20040825
  Receipt Date: 20040810
  Transmission Date: 20050211
  Serious: Yes (Other)
  Sender: FDA-Public Use
  Company Number: DSA_81008_2004

PATIENT
  Age: 43 Year
  Sex: Female
  Weight: 85.2762 kg

DRUGS (7)
  1. XYREM [Suspect]
     Indication: SLEEP DISORDER
     Dosage: 2.25 G TWICE NIGHTLY PO
     Route: 048
     Dates: start: 20040728, end: 20040729
  2. ACTOS [Concomitant]
  3. GLUCOTROL [Concomitant]
  4. FLUOXETINE [Concomitant]
  5. ESTRADIOL [Concomitant]
  6. AYGESTIN [Concomitant]
  7. NEURONTIN [Concomitant]

REACTIONS (7)
  - ANXIETY [None]
  - FATIGUE [None]
  - HEART RATE INCREASED [None]
  - HEART RATE IRREGULAR [None]
  - PALPITATIONS [None]
  - SOMNOLENCE [None]
  - VENTRICULAR EXTRASYSTOLES [None]
